FAERS Safety Report 11689228 (Version 3)
Quarter: 2015Q4

REPORT INFORMATION
  Report Type: Report from Study
  Country: PA (occurrence: PA)
  Receive Date: 20151102
  Receipt Date: 20151222
  Transmission Date: 20160304
  Serious: Yes (Other)
  Sender: FDA-Public Use
  Company Number: PHHY2015PA142399

PATIENT
  Age: 64 Year
  Sex: Male
  Weight: 82.99 kg

DRUGS (2)
  1. SANDOSTATIN LAR DEPOT [Suspect]
     Active Substance: OCTREOTIDE ACETATE
     Indication: ACROMEGALY
     Dosage: UNK UNK, QMO
     Route: 030
  2. FENOBARBITAL [Concomitant]
     Active Substance: PHENOBARBITAL
     Indication: PRODUCT USED FOR UNKNOWN INDICATION
     Dosage: UNK, 2 OR 3 TIMES DAILY
     Route: 065

REACTIONS (3)
  - Benign hepatic neoplasm [Unknown]
  - Inappropriate schedule of drug administration [Unknown]
  - Benign spleen tumour [Unknown]
